FAERS Safety Report 18024983 (Version 1)
Quarter: 2020Q3

REPORT INFORMATION
  Report Type: Spontaneous
  Country: CY (occurrence: CY)
  Receive Date: 20200715
  Receipt Date: 20200715
  Transmission Date: 20201103
  Serious: Yes (Other)
  Sender: FDA-Public Use
  Company Number: CY-TOLMAR, INC.-20CY021942

PATIENT
  Age: 63 Year
  Sex: Male

DRUGS (3)
  1. ABIRATERONE ACETATE. [Suspect]
     Active Substance: ABIRATERONE ACETATE
     Indication: PROSTATIC SPECIFIC ANTIGEN INCREASED
     Dosage: UNK
     Route: 065
     Dates: start: 201501, end: 201508
  2. ELIGARD [Suspect]
     Active Substance: LEUPROLIDE ACETATE
     Indication: PROSTATE CANCER METASTATIC
     Dosage: 22.5 MG, Q 3 MONTH
     Route: 058
     Dates: start: 2010
  3. PAMIDRONATE [Suspect]
     Active Substance: PAMIDRONATE DISODIUM
     Indication: PROSTATE CANCER METASTATIC
     Dosage: UNK, Q 1 MONTH
     Route: 065
     Dates: start: 2010

REACTIONS (2)
  - Prostatic specific antigen increased [Unknown]
  - Metastases to bone [Unknown]

NARRATIVE: CASE EVENT DATE: 201501
